FAERS Safety Report 8815606 (Version 3)
Quarter: 2013Q1

REPORT INFORMATION
  Report Type: Spontaneous
  Country: US (occurrence: US)
  Receive Date: 20120928
  Receipt Date: 20130322
  Transmission Date: 20140127
  Serious: Yes (Hospitalization, Other)
  Sender: FDA-Public Use
  Company Number: US-009507513-2008-177920-NL

PATIENT
  Sex: Female
  Weight: 45.4 kg

DRUGS (19)
  1. NUVARING [Suspect]
     Indication: PAIN MANAGEMENT
     Dosage: CONTINUING: NO
     Route: 067
     Dates: start: 200305, end: 20060728
  2. NUVARING [Suspect]
     Indication: OFF LABEL USE
  3. EXCEDRIN (ACETAMINOPHEN (+) ASPIRIN (+) CAFFEINE) [Concomitant]
     Indication: MIGRAINE
     Dosage: FREQUENCY: TW
     Route: 048
  4. ZELNORM [Concomitant]
     Indication: IRRITABLE BOWEL SYNDROME
  5. CONCERTA [Concomitant]
     Indication: DISTURBANCE IN ATTENTION
     Dosage: ACTION TAKEN: WITHDRAWN
     Route: 048
  6. TESTOSTERONE [Suspect]
     Indication: PRODUCT USED FOR UNKNOWN INDICATION
     Dosage: UNK UNK, BID
     Route: 048
     Dates: end: 20060728
  7. TOPAMAX [Concomitant]
     Indication: MIGRAINE
  8. FIORICET [Concomitant]
     Indication: MIGRAINE
     Dosage: ACTION TAKEN: WITHDRAWN
     Route: 048
  9. VERAPAMIL [Concomitant]
     Indication: MIGRAINE
  10. SINGULAIR [Concomitant]
     Indication: HYPERSENSITIVITY
  11. NASONEX [Concomitant]
     Indication: PRODUCT USED FOR UNKNOWN INDICATION
  12. ADVAIR [Concomitant]
     Indication: PRODUCT USED FOR UNKNOWN INDICATION
  13. CLARITIN [Concomitant]
     Indication: PRODUCT USED FOR UNKNOWN INDICATION
  14. ZYRTEC [Concomitant]
     Indication: PRODUCT USED FOR UNKNOWN INDICATION
  15. ALLEGRA [Concomitant]
     Indication: PRODUCT USED FOR UNKNOWN INDICATION
  16. CLARINEX [Concomitant]
     Indication: PRODUCT USED FOR UNKNOWN INDICATION
  17. LORATADINE [Concomitant]
     Indication: PRODUCT USED FOR UNKNOWN INDICATION
  18. GUAIFENESIN (+) PHENYLEPHRINE HYDROCHLORIDE [Concomitant]
     Indication: PRODUCT USED FOR UNKNOWN INDICATION
  19. MAXAIR [Concomitant]
     Indication: PRODUCT USED FOR UNKNOWN INDICATION

REACTIONS (15)
  - Deep vein thrombosis [Recovering/Resolving]
  - Pulmonary embolism [Recovering/Resolving]
  - Back pain [Unknown]
  - Sinusitis [Unknown]
  - Seasonal allergy [Unknown]
  - Urinary tract infection [Unknown]
  - Constipation [Unknown]
  - Abdominal pain [Not Recovered/Not Resolved]
  - Migraine [Unknown]
  - Off label use [Unknown]
  - Hepatic cyst [Unknown]
  - Somatisation disorder [Unknown]
  - Anxiety [Unknown]
  - Melanosis coli [Unknown]
  - Rectal polyp [Unknown]
